FAERS Safety Report 4324670-1 (Version None)
Quarter: 2004Q1

REPORT INFORMATION
  Report Type: 
  Country: None (occurrence: None)
  Receive Date: 20040325
  Receipt Date: 20040325
  Transmission Date: 20041129
  Serious: Yes (Hospitalization)
  Sender: FDA-Public Use
  Company Number: None

PATIENT
  Age: 67 Year
  Sex: Female
  Weight: 70 kg

DRUGS (11)
  1. TRACLEER [Suspect]
     Indication: HEPATOTOXICITY
     Dosage: 125 MG BID ORAL
     Route: 048
     Dates: start: 20020516, end: 20040317
  2. TRACLEER [Suspect]
     Indication: PULMONARY HYPERTENSION
     Dosage: 125 MG BID ORAL
     Route: 048
     Dates: start: 20020516, end: 20040317
  3. INSULIN [Concomitant]
  4. SPIRONOLACTONE [Concomitant]
  5. FUROSEMIDE [Concomitant]
  6. METOLOZONE [Concomitant]
  7. NIFEDIPINE [Concomitant]
  8. GYNODIOL [Concomitant]
  9. POTASSIUM CHLORIDE [Concomitant]
  10. COUMADIN [Concomitant]
  11. . [Concomitant]

REACTIONS (3)
  - HEPATIC ENZYME INCREASED [None]
  - HYPERBILIRUBINAEMIA [None]
  - NAUSEA [None]
